APPROVED DRUG PRODUCT: MEMANTINE HYDROCHLORIDE
Active Ingredient: MEMANTINE HYDROCHLORIDE
Strength: 14MG
Dosage Form/Route: CAPSULE, EXTENDED RELEASE;ORAL
Application: A205905 | Product #002
Applicant: SUN PHARMACEUTICAL INDUSTRIES LTD
Approved: Sep 28, 2016 | RLD: No | RS: No | Type: DISCN